FAERS Safety Report 8597408-X (Version None)
Quarter: 2012Q3

REPORT INFORMATION
  Report Type: 
  Country: None (occurrence: None)
  Receive Date: 20120801
  Receipt Date: 20120717
  Transmission Date: 20120928
  Serious: Yes (Other)
  Sender: FDA-Public Use
  Company Number: ENT-2012-0090

PATIENT
  Age: 65 Year
  Sex: Male

DRUGS (4)
  1. PRAMIPEXOLE DIHYDROCHLORIDE [Suspect]
     Indication: PARKINSON'S DISEASE
     Dosage: 3.05 MG/DAY
  2. CARBIDOPA + LEVODOPA [Concomitant]
  3. LEVODOPA-BENSERAZIDE HYDROCHLORIDE [Concomitant]
  4. ENTACAPONE [Suspect]
     Indication: PARKINSON'S DISEASE
     Dosage: 800 MG/DAY

REACTIONS (8)
  - ON AND OFF PHENOMENON [None]
  - IRRITABILITY [None]
  - PATHOLOGICAL GAMBLING [None]
  - ECONOMIC PROBLEM [None]
  - DRUG EFFECT DECREASED [None]
  - CHOREA [None]
  - MARITAL PROBLEM [None]
  - BENIGN PROSTATIC HYPERPLASIA [None]
